FAERS Safety Report 19072847 (Version 1)
Quarter: 2021Q1

REPORT INFORMATION
  Report Type: Spontaneous
  Country: US (occurrence: US)
  Receive Date: 20210330
  Receipt Date: 20210330
  Transmission Date: 20210420
  Serious: No
  Sender: FDA-Public Use
  Company Number: US-BAYER-2021-112539

PATIENT
  Age: 35 Year
  Sex: Male

DRUGS (2)
  1. LOTRIMIN ULTRA ANTIFUNGAL [Suspect]
     Active Substance: BUTENAFINE HYDROCHLORIDE
     Indication: SKIN INFECTION
     Dosage: UNK
     Route: 061
     Dates: start: 20210314
  2. LOTRIMIN ULTRA ANTIFUNGAL [Suspect]
     Active Substance: BUTENAFINE HYDROCHLORIDE
     Indication: TINEA CRURIS

REACTIONS (2)
  - Drug ineffective [Unknown]
  - Tinea cruris [Unknown]
